FAERS Safety Report 11365288 (Version 1)
Quarter: 2015Q3

REPORT INFORMATION
  Report Type: Spontaneous
  Country: US (occurrence: US)
  Receive Date: 20150811
  Receipt Date: 20150811
  Transmission Date: 20151125
  Serious: No
  Sender: FDA-Public Use
  Company Number: US-ASTRAZENECA-2015SE74276

PATIENT
  Age: 76 Year
  Sex: Female

DRUGS (6)
  1. CRESTOR [Suspect]
     Active Substance: ROSUVASTATIN CALCIUM
     Route: 048
  2. IBUPROFEN. [Suspect]
     Active Substance: IBUPROFEN
     Route: 065
  3. UNSPECIFIED MEDICATION [Suspect]
     Active Substance: UNSPECIFIED INGREDIENT
     Route: 065
  4. UNSPECIFIED VITAMINS [Suspect]
     Active Substance: VITAMINS
     Route: 065
  5. LIPITOR [Suspect]
     Active Substance: ATORVASTATIN CALCIUM
     Dosage: GENERIC
     Route: 065
  6. LIPITOR [Suspect]
     Active Substance: ATORVASTATIN CALCIUM
     Route: 065

REACTIONS (8)
  - Limb discomfort [Unknown]
  - Feeling abnormal [Unknown]
  - Drug ineffective [Unknown]
  - Depressed mood [Unknown]
  - Abdominal discomfort [Unknown]
  - Muscle spasms [Unknown]
  - Blood cholesterol increased [Unknown]
  - Pain [Unknown]
